FAERS Safety Report 7722063-8 (Version None)
Quarter: 2011Q3

REPORT INFORMATION
  Report Type: 
  Country: None (occurrence: None)
  Receive Date: 20110831
  Receipt Date: 20110825
  Transmission Date: 20111222
  Serious: Yes (Hospitalization, Other)
  Sender: FDA-Public Use
  Company Number: US-ABBOTT-11P-163-0849744-00

PATIENT
  Sex: Male
  Weight: 74.91 kg

DRUGS (6)
  1. HUMIRA [Suspect]
     Indication: CROHN'S DISEASE
     Route: 058
     Dates: start: 20100430, end: 20110217
  2. HUMIRA [Suspect]
     Route: 058
     Dates: start: 20110811, end: 20110811
  3. PREVACID [Concomitant]
     Indication: GASTROOESOPHAGEAL REFLUX DISEASE
  4. PROBIOTICS [Concomitant]
     Indication: GASTROINTESTINAL DISORDER
  5. ENTOCORT EC [Concomitant]
     Indication: CROHN'S DISEASE
  6. HUMIRA [Suspect]
     Route: 058
     Dates: start: 20110818

REACTIONS (9)
  - DYSPNOEA [None]
  - ABDOMINAL PAIN [None]
  - PULMONARY EMBOLISM [None]
  - ANAEMIA [None]
  - PYREXIA [None]
  - CHEST PAIN [None]
  - GASTROINTESTINAL INFLAMMATION [None]
  - ABDOMINAL ABSCESS [None]
  - CROHN'S DISEASE [None]
